FAERS Safety Report 9823656 (Version 1)
Quarter: 2014Q1

REPORT INFORMATION
  Report Type: Spontaneous
  Country: US (occurrence: US)
  Receive Date: 20140116
  Receipt Date: 20140116
  Transmission Date: 20141002
  Serious: No
  Sender: FDA-Public Use
  Company Number: US-GILEAD-2011-0038819

PATIENT
  Age: 6 Year
  Sex: Male

DRUGS (3)
  1. LETAIRIS [Suspect]
     Indication: PULMONARY HYPERTENSION
     Route: 048
     Dates: start: 20100124
  2. FLOVENT [Concomitant]
  3. ADCIRCA [Concomitant]

REACTIONS (1)
  - Pain in extremity [Not Recovered/Not Resolved]
